FAERS Safety Report 19631181 (Version 2)
Quarter: 2021Q3

REPORT INFORMATION
  Report Type: Spontaneous
  Country: CA (occurrence: CA)
  Receive Date: 20210728
  Receipt Date: 20210804
  Transmission Date: 20211014
  Serious: Yes (Other)
  Sender: FDA-Public Use
  Company Number: CA-PFIZER INC-2017449728

PATIENT
  Age: 62 Year
  Sex: Female

DRUGS (7)
  1. XELJANZ [Suspect]
     Active Substance: TOFACITINIB CITRATE
     Indication: RHEUMATOID ARTHRITIS
     Dosage: 5 MG, TWICE DAILY
     Route: 048
     Dates: start: 20161228, end: 201710
  2. ROSUVASTATIN. [Concomitant]
     Active Substance: ROSUVASTATIN
     Indication: BLOOD CHOLESTEROL INCREASED
     Dosage: 10 MG, 1X/DAY
     Route: 048
     Dates: start: 2017
  3. MODERNA COVID?19 VACCINE [Concomitant]
     Active Substance: CX-024414
     Indication: COVID-19 IMMUNISATION
     Dosage: UNK
     Dates: start: 20210420, end: 20210420
  4. XELJANZ [Suspect]
     Active Substance: TOFACITINIB CITRATE
     Dosage: 5 MG, TWICE DAILY
     Route: 048
     Dates: start: 201711, end: 201802
  5. XELJANZ [Suspect]
     Active Substance: TOFACITINIB CITRATE
     Dosage: 5 MG, 2X/DAY
     Route: 048
     Dates: start: 20190909, end: 2020
  6. XELJANZ [Suspect]
     Active Substance: TOFACITINIB CITRATE
     Dosage: 5 MG, 2X/DAY
     Route: 048
     Dates: start: 20190716, end: 2019
  7. CELEBREX [Concomitant]
     Active Substance: CELECOXIB
     Indication: RHEUMATOID ARTHRITIS
     Dosage: 1 DF, DOSAGE INFO: UNKNOWN STATUS: UNKNOWN
     Route: 065

REACTIONS (24)
  - Diverticulitis [Not Recovered/Not Resolved]
  - Headache [Not Recovered/Not Resolved]
  - Chest discomfort [Unknown]
  - Nasal discomfort [Unknown]
  - Urinary tract infection [Unknown]
  - Malaise [Not Recovered/Not Resolved]
  - Abdominal pain [Unknown]
  - Nausea [Not Recovered/Not Resolved]
  - Influenza [Not Recovered/Not Resolved]
  - Glomerular filtration rate decreased [Unknown]
  - Condition aggravated [Not Recovered/Not Resolved]
  - Pain [Unknown]
  - Arthralgia [Unknown]
  - Blood cholesterol increased [Not Recovered/Not Resolved]
  - Constipation [Not Recovered/Not Resolved]
  - Fungal infection [Unknown]
  - Pain in extremity [Unknown]
  - Balance disorder [Unknown]
  - Blood pressure increased [Recovered/Resolved]
  - Hepatic enzyme increased [Unknown]
  - Cystitis [Not Recovered/Not Resolved]
  - Guillain-Barre syndrome [Recovering/Resolving]
  - Muscular weakness [Unknown]
  - Pelvic pain [Unknown]

NARRATIVE: CASE EVENT DATE: 2017
